FAERS Safety Report 19286598 (Version 1)
Quarter: 2021Q2

REPORT INFORMATION
  Report Type: Report from Study
  Country: IT (occurrence: IT)
  Receive Date: 20210521
  Receipt Date: 20210521
  Transmission Date: 20210717
  Serious: Yes (Hospitalization, Other)
  Sender: FDA-Public Use
  Company Number: IT-JNJFOC-20210523887

PATIENT

DRUGS (1)
  1. TOPAMAX [Suspect]
     Active Substance: TOPIRAMATE
     Indication: EPILEPSY
     Route: 048

REACTIONS (21)
  - Altered state of consciousness [Unknown]
  - Anxiety [Unknown]
  - Renal disorder [Unknown]
  - Somnolence [Unknown]
  - Gastrointestinal disorder [Unknown]
  - Suicidal ideation [Unknown]
  - Rash [Unknown]
  - Agitation [Unknown]
  - Product administration error [Unknown]
  - Urinary tract disorder [Unknown]
  - Eye disorder [Unknown]
  - Psychomotor hyperactivity [Unknown]
  - Aggression [Unknown]
  - Drug ineffective [Unknown]
  - Appetite disorder [Unknown]
  - Intentional self-injury [Unknown]
  - Pyrexia [Unknown]
  - Cognitive disorder [Unknown]
  - Irritability [Unknown]
  - Visual impairment [Unknown]
  - Behaviour disorder [Unknown]
